FAERS Safety Report 6089736-7 (Version None)
Quarter: 2009Q1

REPORT INFORMATION
  Report Type: 
  Country: None (occurrence: None)
  Receive Date: 20090224
  Receipt Date: 20090212
  Transmission Date: 20090719
  Serious: No
  Sender: FDA-Public Use
  Company Number: US-ELI_LILLY_AND_COMPANY-US200902003812

PATIENT

DRUGS (10)
  1. ZYPREXA [Suspect]
  2. ATIVAN [Concomitant]
  3. BENADRYL [Concomitant]
  4. IRON [Concomitant]
  5. VITAMIN B COMPLEX CAP [Concomitant]
  6. MULTI-VITAMIN [Concomitant]
  7. ZANTAC [Concomitant]
  8. SIMETHICONE [Concomitant]
  9. TYLENOL W/ CODEINE NO. 3 [Concomitant]
  10. HALOPERIDOL [Concomitant]

REACTIONS (1)
  - ANAEMIA [None]
